FAERS Safety Report 24383141 (Version 1)
Quarter: 2024Q4

REPORT INFORMATION
  Report Type: Spontaneous
  Country: US (occurrence: US)
  Receive Date: 20241001
  Receipt Date: 20241001
  Transmission Date: 20250114
  Serious: Yes (Other)
  Sender: CATALYST PHARMA
  Company Number: US-CATALYST PHARMACEUTICALS-US-CATA-24-00431

PATIENT
  Sex: Male
  Weight: 88.889 kg

DRUGS (16)
  1. AGAMREE [Suspect]
     Active Substance: VAMOROLONE
     Indication: Duchenne muscular dystrophy
     Dosage: 7.5 ML (300 MG) PER NOON OR AS SOON AS HE GETS AROUND FOR THE DAY/ IN THE MORNING
     Route: 048
     Dates: start: 20240421, end: 20240504
  2. AGAMREE [Suspect]
     Active Substance: VAMOROLONE
     Indication: Becker^s muscular dystrophy
  3. CALCIUM [Concomitant]
     Active Substance: CALCIUM
     Indication: Hypovitaminosis
     Dosage: 500 MG DAILY
     Route: 065
  4. CALCIUM [Concomitant]
     Active Substance: CALCIUM
     Dosage: 600 MG A DAY
     Route: 065
  5. EMFLAZA [Concomitant]
     Active Substance: DEFLAZACORT
     Indication: Product used for unknown indication
     Dosage: 72 MG BEFORE NOON
     Route: 065
  6. EMFLAZA [Concomitant]
     Active Substance: DEFLAZACORT
     Dosage: 72 MG BEFORE NOON
     Route: 065
  7. FISH OIL [Concomitant]
     Active Substance: FISH OIL
     Indication: Cardiac disorder
     Dosage: 1000 MG TWICE A DAY
     Route: 065
  8. FISH OIL [Concomitant]
     Active Substance: FISH OIL
     Dosage: 1400 MG PER DAY
     Route: 065
  9. MAGNESIUM OXIDE [Concomitant]
     Active Substance: MAGNESIUM OXIDE
     Indication: Hypovitaminosis
     Dosage: 200 MG DAILY
     Route: 065
  10. VARICELLA-ZOSTER VIRUS STRAIN OKA/MERCK LIVE ANTIGEN [Concomitant]
     Active Substance: VARICELLA-ZOSTER VIRUS STRAIN OKA/MERCK LIVE ANTIGEN
     Indication: Varicella
     Dosage: UNKNOWN
     Route: 065
  11. VITAMIN D3 [Concomitant]
     Active Substance: CHOLECALCIFEROL
     Indication: Hypovitaminosis
     Dosage: 2000 IU DAILY
     Route: 065
  12. VITAMIN D3 [Concomitant]
     Active Substance: CHOLECALCIFEROL
     Dosage: 4000 INTERNATIONAL UNITS A DAY
     Route: 065
  13. VITAMIN B12 [Concomitant]
     Active Substance: CYANOCOBALAMIN
     Indication: Hypovitaminosis
     Dosage: 1000 MICROGRAMS DAILY
     Route: 048
  14. YOGURT [Concomitant]
     Indication: Blood calcium
     Dosage: DAILY
     Route: 048
  15. YOGURT [Concomitant]
     Indication: Dysbiosis
  16. CALCIUM CARBONATE [Concomitant]
     Active Substance: CALCIUM CARBONATE
     Indication: Product used for unknown indication
     Dosage: 500 MG 2 X DAY
     Route: 048

REACTIONS (18)
  - Herpes zoster [Recovered/Resolved]
  - Nausea [Unknown]
  - Eye discharge [Unknown]
  - Asthenia [Not Recovered/Not Resolved]
  - Decreased appetite [Recovered/Resolved]
  - Excessive cerumen production [Unknown]
  - Feeling hot [Unknown]
  - Musculoskeletal discomfort [Not Recovered/Not Resolved]
  - Lymphadenopathy [Not Recovered/Not Resolved]
  - Skin lesion [Not Recovered/Not Resolved]
  - Vision blurred [Recovered/Resolved]
  - Skin hyperpigmentation [Not Recovered/Not Resolved]
  - Diarrhoea [Unknown]
  - Depression [Not Recovered/Not Resolved]
  - Infection [Not Recovered/Not Resolved]
  - Headache [Not Recovered/Not Resolved]
  - Insomnia [Not Recovered/Not Resolved]
  - Off label use [Unknown]

NARRATIVE: CASE EVENT DATE: 20240101
